FAERS Safety Report 8104540-3 (Version None)
Quarter: 2012Q1

REPORT INFORMATION
  Report Type: 
  Country: None (occurrence: None)
  Receive Date: 20120201
  Receipt Date: 20120125
  Transmission Date: 20120608
  Serious: Yes (Disabling)
  Sender: FDA-Public Use
  Company Number: US-MERCK-1201USA03543

PATIENT
  Age: 70 Year
  Sex: Female

DRUGS (2)
  1. SINGULAIR [Concomitant]
     Route: 048
  2. FOSAMAX [Suspect]
     Dosage: ^ABOUT 20 YEARS AGO^
     Route: 048
     Dates: end: 20120101

REACTIONS (2)
  - FEMUR FRACTURE [None]
  - FRACTURE [None]
